FAERS Safety Report 25985654 (Version 1)
Quarter: 2025Q4

REPORT INFORMATION
  Report Type: Spontaneous
  Country: GB (occurrence: GB)
  Receive Date: 20251031
  Receipt Date: 20251031
  Transmission Date: 20260118
  Serious: Yes (Other)
  Sender: ADMA BIOLOGICS
  Company Number: GB-ADMA BIOLOGICS INC.-GB-2025ADM000348

PATIENT
  Weight: 2.2 kg

DRUGS (1)
  1. HUMAN IMMUNOGLOBULIN G [Suspect]
     Active Substance: HUMAN IMMUNOGLOBULIN G
     Indication: Neonatal alloimmune thrombocytopenia
     Dosage: WEEKLY
     Route: 064

REACTIONS (3)
  - Thrombocytopenia [Recovered/Resolved]
  - Foetal exposure during pregnancy [Unknown]
  - Off label use [Unknown]
